FAERS Safety Report 7557071-3 (Version None)
Quarter: 2011Q2

REPORT INFORMATION
  Report Type: 
  Country: None (occurrence: None)
  Receive Date: 20110620
  Receipt Date: 20110608
  Transmission Date: 20111010
  Serious: Yes (Hospitalization, Other)
  Sender: FDA-Public Use
  Company Number: US-ROCHE-727313

PATIENT
  Sex: Male
  Weight: 70.3 kg

DRUGS (1)
  1. ACCUTANE [Suspect]
     Indication: ACNE
     Route: 065
     Dates: start: 19830901, end: 19840901

REACTIONS (11)
  - CROHN'S DISEASE [None]
  - LARGE INTESTINE PERFORATION [None]
  - GASTROINTESTINAL INJURY [None]
  - INTESTINAL FISTULA [None]
  - OESOPHAGEAL STENOSIS [None]
  - ANAEMIA [None]
  - INTESTINAL OBSTRUCTION [None]
  - INFLAMMATORY BOWEL DISEASE [None]
  - DEPRESSION [None]
  - SUICIDAL IDEATION [None]
  - ABDOMINAL ABSCESS [None]
